FAERS Safety Report 24320975 (Version 4)
Quarter: 2025Q1

REPORT INFORMATION
  Report Type: Report from Study
  Country: US (occurrence: US)
  Receive Date: 20240915
  Receipt Date: 20250325
  Transmission Date: 20250408
  Serious: No
  Sender: ABBVIE
  Company Number: US-ABBVIE-5917544

PATIENT
  Age: 50 Year
  Sex: Female
  Weight: 122.46 kg

DRUGS (3)
  1. HUMIRA [Suspect]
     Active Substance: ADALIMUMAB
     Indication: Hidradenitis
     Dosage: FORM STRENGTH: 40MG
     Route: 058
     Dates: start: 20201221
  2. INSULIN HUMAN [Concomitant]
     Active Substance: INSULIN HUMAN
     Indication: Blood glucose
     Route: 065
  3. HUMALOG [Concomitant]
     Active Substance: INSULIN LISPRO
     Indication: Blood glucose
     Route: 065

REACTIONS (7)
  - Sneezing [Recovered/Resolved]
  - Blood glucose increased [Recovered/Resolved]
  - Illness [Recovering/Resolving]
  - Cough [Recovered/Resolved]
  - Influenza [Recovered/Resolved]
  - Cough [Recovering/Resolving]
  - Illness [Recovered/Resolved]

NARRATIVE: CASE EVENT DATE: 20240101
